FAERS Safety Report 5336726-5 (Version None)
Quarter: 2007Q2

REPORT INFORMATION
  Report Type: 
  Country: None (occurrence: None)
  Receive Date: 20070529
  Receipt Date: 20070523
  Transmission Date: 20071010
  Serious: Yes (Life-Threatening, Other)
  Sender: FDA-Public Use
  Company Number: PHEH2007US07818

PATIENT

DRUGS (2)
  1. ZELNORM [Suspect]
  2. ALLERGY MEDICATION [Concomitant]

REACTIONS (15)
  - ABDOMINAL PAIN [None]
  - ADHESION [None]
  - ANGIOPATHY [None]
  - BOWEL MOVEMENT IRREGULARITY [None]
  - CARDIAC DISORDER [None]
  - CEREBROVASCULAR ACCIDENT [None]
  - DYSARTHRIA [None]
  - FEELING ABNORMAL [None]
  - FLATULENCE [None]
  - GAIT DISTURBANCE [None]
  - GALLBLADDER OPERATION [None]
  - NERVOUS SYSTEM DISORDER [None]
  - PAIN [None]
  - SURGERY [None]
  - VOMITING [None]
